FAERS Safety Report 10027216 (Version 1)
Quarter: 2014Q1

REPORT INFORMATION
  Report Type: Report from Study
  Country: CA (occurrence: CA)
  Receive Date: 20140321
  Receipt Date: 20140321
  Transmission Date: 20141002
  Serious: Yes (Other)
  Sender: FDA-Public Use
  Company Number: CA-BRISTOL-MYERS SQUIBB COMPANY-20511200

PATIENT
  Age: 67 Year
  Sex: Female

DRUGS (9)
  1. ORENCIA [Suspect]
     Indication: RHEUMATOID ARTHRITIS
     Dosage: 1DF:750 UNITS NOS,LAST DOSE:2014
     Dates: start: 20130130
  2. HUMIRA [Concomitant]
  3. ADVAIR [Concomitant]
  4. SPIRIVA [Concomitant]
  5. NITRO [Concomitant]
  6. TYLENOL #2 [Concomitant]
  7. LYRICA [Concomitant]
  8. NIFEDIPINE XL [Concomitant]
  9. PREDNISONE [Concomitant]

REACTIONS (1)
  - Intestinal operation [Recovering/Resolving]
